FAERS Safety Report 16263292 (Version 2)
Quarter: 2019Q3

REPORT INFORMATION
  Report Type: Spontaneous
  Country: GB (occurrence: GB)
  Receive Date: 20190502
  Receipt Date: 20190704
  Transmission Date: 20191004
  Serious: Yes (Other)
  Sender: FDA-Public Use
  Company Number: GB-SA-2019SA117940

PATIENT
  Age: 40 Year
  Sex: Male

DRUGS (2)
  1. DUPIXENT [Suspect]
     Active Substance: DUPILUMAB
     Dosage: 300 MG ONCE EVERY 2 WEEKS
     Route: 058
  2. DUPIXENT [Suspect]
     Active Substance: DUPILUMAB
     Indication: DERMATITIS ATOPIC
     Dosage: 600 MG LOADING DOSE
     Route: 058

REACTIONS (10)
  - Joint swelling [Recovering/Resolving]
  - Seronegative arthritis [Recovering/Resolving]
  - Joint effusion [Recovering/Resolving]
  - Hypokinesia [Recovering/Resolving]
  - Enthesopathy [Recovering/Resolving]
  - Arthralgia [Recovering/Resolving]
  - Peripheral swelling [Recovering/Resolving]
  - Synovitis [Recovering/Resolving]
  - Mobility decreased [Not Recovered/Not Resolved]
  - Joint stiffness [Recovering/Resolving]
